FAERS Safety Report 6908930-3 (Version None)
Quarter: 2010Q3

REPORT INFORMATION
  Report Type: 
  Country: None (occurrence: None)
  Receive Date: 20100719
  Receipt Date: 20100416
  Transmission Date: 20110219
  Serious: Yes (Life-Threatening, Hospitalization, Disabling)
  Sender: FDA-Public Use
  Company Number: HQWYE337726SEP07

PATIENT
  Age: 50 Year
  Sex: Female

DRUGS (4)
  1. IBUPROFEN [Suspect]
     Indication: COUGH
     Dosage: ORAL
     Route: 048
  2. IBUPROFEN [Suspect]
     Indication: MALAISE
     Dosage: ORAL
     Route: 048
  3. IBUPROFEN [Suspect]
     Indication: NASOPHARYNGITIS
     Dosage: ORAL
     Route: 048
  4. IBUPROFEN [Suspect]
     Indication: PAIN
     Dosage: ORAL
     Route: 048

REACTIONS (2)
  - STEVENS-JOHNSON SYNDROME [None]
  - TOXIC EPIDERMAL NECROLYSIS [None]
